FAERS Safety Report 8829133 (Version 1)
Quarter: 2012Q4

REPORT INFORMATION
  Report Type: 
  Country: US (occurrence: US)
  Receive Date: 20121009
  Receipt Date: 20121009
  Transmission Date: 20130627
  Serious: No
  Sender: FDA-Public Use
  Company Number: US-BIOGENIDEC-2012BI042398

PATIENT
  Sex: Male

DRUGS (1)
  1. AVONEX [Suspect]
     Indication: MULTIPLE SCLEROSIS
     Route: 030
     Dates: start: 20031002, end: 20120604

REACTIONS (9)
  - Monoplegia [Unknown]
  - Abdominal pain [Not Recovered/Not Resolved]
  - Mobility decreased [Unknown]
  - Muscle spasms [Not Recovered/Not Resolved]
  - Influenza like illness [Unknown]
  - Musculoskeletal stiffness [Unknown]
  - Malaise [Unknown]
  - Feeling abnormal [Unknown]
  - Pain in extremity [Unknown]
